FAERS Safety Report 18526195 (Version 1)
Quarter: 2020Q4

REPORT INFORMATION
  Report Type: Spontaneous
  Country: JP (occurrence: JP)
  Receive Date: 20201120
  Receipt Date: 20201120
  Transmission Date: 20210114
  Serious: Yes (Death, Other)
  Sender: FDA-Public Use
  Company Number: JP-ASTELLAS-2020JP018287

PATIENT
  Age: 79 Year
  Sex: Female

DRUGS (1)
  1. XOSPATA [Suspect]
     Active Substance: GILTERITINIB
     Indication: ACUTE MYELOID LEUKAEMIA
     Dosage: 120 MG/DAY, UNKNOWN FREQ.
     Route: 065

REACTIONS (8)
  - Thrombocytopenia [Unknown]
  - Diarrhoea [Unknown]
  - Haemorrhage intracranial [Fatal]
  - Anaemia [Unknown]
  - Febrile neutropenia [Unknown]
  - Contusion [Unknown]
  - Depressed level of consciousness [Unknown]
  - Dizziness [Unknown]
